FAERS Safety Report 9675079 (Version 1)
Quarter: 2013Q4

REPORT INFORMATION
  Report Type: Spontaneous
  Country: US (occurrence: None)
  Receive Date: 20131106
  Receipt Date: 20131106
  Transmission Date: 20140711
  Serious: Yes (Hospitalization, Disabling)
  Sender: FDA-Public Use
  Company Number: None

PATIENT
  Age: 26 Year
  Sex: Female
  Weight: 67.13 kg

DRUGS (3)
  1. MIRENA [Suspect]
     Indication: CONTRACEPTION
     Dates: start: 20120101, end: 20130801
  2. DIAMOX [Concomitant]
  3. IBUPROFEN [Concomitant]

REACTIONS (5)
  - Device dislocation [None]
  - Benign intracranial hypertension [None]
  - Musculoskeletal stiffness [None]
  - Muscle spasms [None]
  - Blindness [None]
